FAERS Safety Report 20059435 (Version 1)
Quarter: 2021Q4

REPORT INFORMATION
  Report Type: Spontaneous
  Country: BR (occurrence: BR)
  Receive Date: 20211111
  Receipt Date: 20211111
  Transmission Date: 20220303
  Serious: Yes (Life-Threatening, Other)
  Sender: FDA-Public Use
  Company Number: None

PATIENT
  Sex: Female
  Weight: 79.6 kg

DRUGS (21)
  1. PREDNISONE [Interacting]
     Active Substance: PREDNISONE
     Indication: Non-Hodgkin^s lymphoma
     Dosage: PREDNISONE, 100 MG, ORALLY, D1-D5.
     Route: 048
     Dates: start: 20200828, end: 20200901
  2. LOSARTAN POTASSIUM [Interacting]
     Active Substance: LOSARTAN POTASSIUM
     Dosage: 50 MG, 24/24H, ORAL ROUTE
     Route: 048
  3. SIMVASTATIN [Interacting]
     Active Substance: SIMVASTATIN
     Dosage: 40 MG, 24/24H, ORAL ROUTE
     Route: 048
  4. DOXORUBICIN HYDROCHLORIDE [Interacting]
     Active Substance: DOXORUBICIN HYDROCHLORIDE
     Indication: Non-Hodgkin^s lymphoma
     Dosage: UNK
  5. DOXORUBICIN HYDROCHLORIDE [Interacting]
     Active Substance: DOXORUBICIN HYDROCHLORIDE
     Dosage: 38 MILLIGRAM PER SQUARE METRE (MG/M2) (28 CYCLIC)
     Route: 042
     Dates: start: 20210114, end: 20210114
  6. DOXORUBICIN HYDROCHLORIDE [Interacting]
     Active Substance: DOXORUBICIN HYDROCHLORIDE
     Dosage: 38 MILLIGRAM PER SQUARE METRE (MG/M2) (28 CYCLIC)
     Route: 042
     Dates: start: 20201201, end: 20201201
  7. DOXORUBICIN HYDROCHLORIDE [Interacting]
     Active Substance: DOXORUBICIN HYDROCHLORIDE
     Dosage: IN SG 5%, 50 ML, FOR 15 MINUTES (21 CYCLIC)
     Route: 042
     Dates: start: 20201013, end: 20201013
  8. DOXORUBICIN HYDROCHLORIDE [Interacting]
     Active Substance: DOXORUBICIN HYDROCHLORIDE
     Dosage: IN SG 5%, 50 ML, FOR 15 MINUTES (21 CYCLIC)
     Route: 042
     Dates: start: 20200828, end: 20200828
  9. VINCRISTINE SULFATE [Interacting]
     Active Substance: VINCRISTINE SULFATE
     Indication: Non-Hodgkin^s lymphoma
     Dosage: UNK
  10. VINCRISTINE SULFATE [Interacting]
     Active Substance: VINCRISTINE SULFATE
     Dosage: 1.2 MILLIGRAM PER SQUARE METRE (MG/M2) (28 CYCLIC)
     Route: 042
     Dates: start: 20210114, end: 20210114
  11. VINCRISTINE SULFATE [Interacting]
     Active Substance: VINCRISTINE SULFATE
     Dosage: 1.2 MILLIGRAM PER SQUARE METRE (MG/M2) (28 CYCLIC)
     Route: 042
     Dates: start: 20201201, end: 20201201
  12. VINCRISTINE SULFATE [Interacting]
     Active Substance: VINCRISTINE SULFATE
     Dosage: EM SF 0,9%, 50 ML (21 CYCLIC)
     Route: 042
     Dates: start: 20201013, end: 20201013
  13. VINCRISTINE SULFATE [Interacting]
     Active Substance: VINCRISTINE SULFATE
     Dosage: IN NACL 0.9%, 50 ML (IN BOLUS) (21 CYCLIC)
     Route: 042
     Dates: start: 20200828, end: 20200828
  14. GENUXAL [Interacting]
     Active Substance: CYCLOPHOSPHAMIDE
     Indication: Non-Hodgkin^s lymphoma
     Dosage: IN SF 0.9% 250 ML, FOR 30 MINUTES (21 CYCLIC)
     Route: 042
     Dates: start: 20201013, end: 20201013
  15. GENUXAL [Interacting]
     Active Substance: CYCLOPHOSPHAMIDE
     Dosage: IN SF 0.9% 250 ML, FOR 30 MINUTES (21 CYCLIC)
     Route: 042
     Dates: start: 20200828, end: 20200828
  16. ASPIRIN [Interacting]
     Active Substance: ASPIRIN
     Dosage: 100 MG, 24/24H
  17. ATENOLOL [Interacting]
     Active Substance: ATENOLOL
     Dosage: 24/24H, ORAL
     Route: 048
  18. INDAPAMIDE [Interacting]
     Active Substance: INDAPAMIDE
     Dosage: 1.5 MG, 24/24H, ORAL
     Route: 048
  19. CLORIDRATO DE PALONOSETRONA [Concomitant]
     Indication: Chemotherapy side effect prophylaxis
     Dosage: UNK
     Dates: start: 20200828, end: 20200828
  20. FOSAPREPITANT [Concomitant]
     Active Substance: FOSAPREPITANT
     Indication: Chemotherapy side effect prophylaxis
     Dosage: UNK
     Dates: start: 20200828, end: 20200828
  21. DEXAMETASONA [DEXAMETHASONE SODIUM PHOSPHATE] [Concomitant]
     Indication: Chemotherapy side effect prophylaxis
     Dosage: UNK
     Dates: start: 20200828, end: 20200828

REACTIONS (8)
  - Potentiating drug interaction [Not Recovered/Not Resolved]
  - Neutropenia [Recovered/Resolved]
  - Fatigue [Recovering/Resolving]
  - Anaemia [Recovering/Resolving]
  - Asthenia [Recovering/Resolving]
  - Thrombocytopenia [Recovering/Resolving]
  - Nausea [Recovering/Resolving]
  - Anaemia [Recovering/Resolving]

NARRATIVE: CASE EVENT DATE: 20200101
